FAERS Safety Report 7175564-8 (Version None)
Quarter: 2010Q4

REPORT INFORMATION
  Report Type: 
  Country: None (occurrence: None)
  Receive Date: 20101220
  Receipt Date: 20100320
  Transmission Date: 20110411
  Serious: No
  Sender: FDA-Public Use
  Company Number: US-AMGEN-TCS401105

PATIENT

DRUGS (1)
  1. ENBREL [Suspect]
     Indication: RHEUMATOID ARTHRITIS
     Dosage: 50 MG, QWK
     Route: 058
     Dates: start: 20040401

REACTIONS (5)
  - BACK PAIN [None]
  - CONTUSION [None]
  - HYPOAESTHESIA [None]
  - LIMB INJURY [None]
  - LUMBAR VERTEBRAL FRACTURE [None]
